FAERS Safety Report 6641609-4 (Version None)
Quarter: 2010Q1

REPORT INFORMATION
  Report Type: 
  Country: None (occurrence: None)
  Receive Date: 20100317
  Receipt Date: 20100317
  Transmission Date: 20100710
  Serious: Yes (Other)
  Sender: FDA-Public Use
  Company Number: None

PATIENT
  Age: 52 Year
  Sex: Male
  Weight: 63.6 kg

DRUGS (1)
  1. INSULIN, GLARGINE [Suspect]
     Indication: TYPE 1 DIABETES MELLITUS
     Dosage: 16 IMOTS 4OUNCE 12QHS TOTAL 16 UNITS
     Dates: start: 20100117

REACTIONS (5)
  - ABDOMINAL PAIN [None]
  - BLOOD GLUCOSE DECREASED [None]
  - BLOOD GLUCOSE INCREASED [None]
  - DIZZINESS [None]
  - INCORRECT DOSE ADMINISTERED [None]
